FAERS Safety Report 5317075-8 (Version None)
Quarter: 2007Q2

REPORT INFORMATION
  Report Type: 
  Country: None (occurrence: None)
  Receive Date: 20070504
  Receipt Date: 20070423
  Transmission Date: 20071010
  Serious: Yes (Life-Threatening, Hospitalization)
  Sender: FDA-Public Use
  Company Number: ES-ROCHE-494766

PATIENT
  Age: 43 Year
  Sex: Female
  Weight: 62 kg

DRUGS (2)
  1. PEGASYS [Suspect]
     Indication: CHRONIC HEPATITIS
     Dosage: FORM: PREFILLED SYRINGES.
     Route: 065
     Dates: start: 20060430, end: 20061010
  2. RIBAVIRIN [Suspect]
     Indication: CHRONIC HEPATITIS
     Route: 065
     Dates: start: 20060303, end: 20061010

REACTIONS (2)
  - THROMBOCYTOPENIA [None]
  - UTERINE HAEMORRHAGE [None]
